FAERS Safety Report 6997604-9 (Version None)
Quarter: 2010Q3

REPORT INFORMATION
  Report Type: 
  Country: None (occurrence: None)
  Receive Date: 20100918
  Receipt Date: 20091116
  Transmission Date: 20110219
  Serious: No
  Sender: FDA-Public Use
  Company Number: US-WYE-H12188809

PATIENT
  Sex: Female
  Weight: 54.48 kg

DRUGS (6)
  1. PRISTIQ [Suspect]
     Indication: DEPRESSION
     Route: 048
     Dates: start: 20091101, end: 20091101
  2. PRISTIQ [Suspect]
     Route: 048
     Dates: start: 20091101, end: 20091113
  3. CLARITIN [Concomitant]
  4. YAZ [Concomitant]
  5. TRAZODONE HCL [Concomitant]
  6. TRANXENE [Concomitant]

REACTIONS (6)
  - DECREASED APPETITE [None]
  - DRUG WITHDRAWAL SYNDROME [None]
  - HEART RATE INCREASED [None]
  - INSOMNIA [None]
  - PALPITATIONS [None]
  - UNEVALUABLE EVENT [None]
